FAERS Safety Report 20830091 (Version 1)
Quarter: 2022Q2

REPORT INFORMATION
  Report Type: Spontaneous
  Country: US (occurrence: US)
  Receive Date: 20220514
  Receipt Date: 20220514
  Transmission Date: 20220720
  Serious: Yes (Other)
  Sender: FDA-Public Use
  Company Number: US-JNJFOC-20220512378

PATIENT
  Age: 60 Year
  Sex: Male
  Weight: 111.68 kg

DRUGS (1)
  1. TREMFYA [Suspect]
     Active Substance: GUSELKUMAB
     Indication: Psoriasis
     Route: 065
     Dates: start: 20220421

REACTIONS (3)
  - Knee arthroplasty [Unknown]
  - Impaired healing [Not Recovered/Not Resolved]
  - Animal bite [Unknown]

NARRATIVE: CASE EVENT DATE: 20220423
